FAERS Safety Report 25449866 (Version 1)
Quarter: 2025Q2

REPORT INFORMATION
  Report Type: Report from Study
  Country: EG (occurrence: EG)
  Receive Date: 20250618
  Receipt Date: 20250618
  Transmission Date: 20250716
  Serious: Yes (Other)
  Sender: ROCHE
  Company Number: EG-ROCHE-10000162763

PATIENT
  Age: 73 Year
  Sex: Female
  Weight: 105 kg

DRUGS (4)
  1. PHESGO [Suspect]
     Active Substance: HYALURONIDASE-ZZXF\PERTUZUMAB\TRASTUZUMAB
     Indication: Breast cancer
     Route: 058
     Dates: start: 20240926
  2. PACLITAXEL [Concomitant]
     Active Substance: PACLITAXEL
     Indication: Breast cancer
  3. PERJETA [Concomitant]
     Active Substance: PERTUZUMAB
  4. HERCEPTIN [Concomitant]
     Active Substance: TRASTUZUMAB

REACTIONS (4)
  - Left ventricular failure [Recovered/Resolved]
  - Blood pressure fluctuation [Recovered/Resolved]
  - Cardiomegaly [Unknown]
  - Dyspnoea [Unknown]

NARRATIVE: CASE EVENT DATE: 20241031
